FAERS Safety Report 8323862-4 (Version None)
Quarter: 2012Q2

REPORT INFORMATION
  Report Type: 
  Country: None (occurrence: None)
  Receive Date: 20120501
  Receipt Date: 20120417
  Transmission Date: 20120825
  Serious: Yes (Other)
  Sender: FDA-Public Use
  Company Number: CA-NOVOPROD-349877

PATIENT
  Age: 60 Year
  Sex: Male
  Weight: 141 kg

DRUGS (6)
  1. NAPROXEN (ALEVE) [Concomitant]
  2. FUROSEMIDE [Concomitant]
     Dosage: 80 MG, QD
     Route: 048
  3. IRBESARTAN [Concomitant]
     Dosage: 300 MG, QD
     Route: 048
  4. VICTOZA [Suspect]
     Indication: TYPE 2 DIABETES MELLITUS
     Dosage: 1.8 MG, QD
     Route: 058
     Dates: start: 20120104
  5. HYDROCHLOROTHIAZIDE [Concomitant]
     Dosage: 2.5 MG, QD
     Route: 048
  6. METFORMIN HCL [Concomitant]
     Dosage: 2000 MG, QD
     Route: 048

REACTIONS (3)
  - BACK PAIN [None]
  - DRUG INEFFECTIVE [None]
  - RENAL PAIN [None]
